FAERS Safety Report 7430142-8 (Version None)
Quarter: 2011Q2

REPORT INFORMATION
  Report Type: 
  Country: None (occurrence: None)
  Receive Date: 20110421
  Receipt Date: 20100802
  Transmission Date: 20111010
  Serious: No
  Sender: FDA-Public Use
  Company Number: US-ASTRAZENECA-2010SE36051

PATIENT
  Age: 876 Month
  Sex: Female
  Weight: 55.3 kg

DRUGS (1)
  1. TOPROL-XL [Suspect]
     Indication: CARDIAC FAILURE
     Route: 048
     Dates: start: 20100701, end: 20100701

REACTIONS (1)
  - HYPOAESTHESIA FACIAL [None]
